FAERS Safety Report 5993561-2 (Version None)
Quarter: 2008Q4

REPORT INFORMATION
  Report Type: 
  Country: None (occurrence: None)
  Receive Date: 20081212
  Receipt Date: 20081204
  Transmission Date: 20090506
  Serious: Yes (Other)
  Sender: FDA-Public Use
  Company Number: PHHY2008BR30821

PATIENT
  Sex: Male
  Weight: 104 kg

DRUGS (1)
  1. DIOVAN HCT [Suspect]
     Indication: HYPERTENSION
     Dosage: 1 TABLET (160/12.5 MG) DAILY
     Route: 048

REACTIONS (3)
  - BLOOD URINE PRESENT [None]
  - HEADACHE [None]
  - PAIN IN EXTREMITY [None]
